FAERS Safety Report 16613505 (Version 2)
Quarter: 2020Q1

REPORT INFORMATION
  Report Type: Spontaneous
  Country: DE (occurrence: DE)
  Receive Date: 20190723
  Receipt Date: 20200306
  Transmission Date: 20200409
  Serious: Yes (Disabling, Other)
  Sender: FDA-Public Use
  Company Number: PHHY2019DE165508

PATIENT
  Age: 67 Year
  Sex: Female
  Weight: 99 kg

DRUGS (3)
  1. CANDESARTAN COMP. ABZ [Suspect]
     Active Substance: CANDESARTAN CILEXETIL\HYDROCHLOROTHIAZIDE
     Indication: HYPERTENSION
     Dosage: EINNAHME SEIT JAHRZEHNTEN
     Route: 048
  2. VALSARTAN COMP [Suspect]
     Active Substance: HYDROCHLOROTHIAZIDE\VALSARTAN
     Indication: HYPERTENSION
     Dosage: 12.5 MG, QD
     Route: 048
     Dates: start: 2003, end: 2004
  3. PROVAS COMP [Suspect]
     Active Substance: HYDROCHLOROTHIAZIDE\VALSARTAN
     Indication: HYPERTENSION
     Dosage: 12.5 MG, QD
     Route: 048
     Dates: end: 2003

REACTIONS (3)
  - Actinic keratosis [Unknown]
  - Skin disorder [Unknown]
  - Basal cell carcinoma [Not Recovered/Not Resolved]
